FAERS Safety Report 10101934 (Version 1)
Quarter: 2014Q2

REPORT INFORMATION
  Report Type: Report from Study
  Country: PH (occurrence: PH)
  Receive Date: 20140424
  Receipt Date: 20140424
  Transmission Date: 20141212
  Serious: Yes (Other)
  Sender: FDA-Public Use
  Company Number: PHHY2014PH049191

PATIENT
  Age: 56 Year
  Sex: Male
  Weight: 70 kg

DRUGS (3)
  1. TASIGNA [Suspect]
     Indication: CHRONIC MYELOID LEUKAEMIA
     Dosage: 800 MG, PER DAY
     Route: 048
     Dates: start: 201305
  2. TASIGNA [Suspect]
     Dosage: 400 MG, PER DAY
     Route: 048
     Dates: start: 20130717, end: 20130809
  3. TASIGNA [Suspect]
     Dosage: 400 MG, PER DAY
     Dates: start: 20130820

REACTIONS (1)
  - Pancytopenia [Recovered/Resolved]
